FAERS Safety Report 8737418 (Version 3)
Quarter: 2013Q1

REPORT INFORMATION
  Report Type: Spontaneous
  Country: US (occurrence: US)
  Receive Date: 20120822
  Receipt Date: 20130109
  Transmission Date: 20140127
  Serious: No
  Sender: FDA-Public Use
  Company Number: US-PFIZER INC-2012204083

PATIENT
  Age: 21 Year
  Sex: Male
  Weight: 72.56 kg

DRUGS (8)
  1. GEODON [Suspect]
     Indication: BIPOLAR DISORDER
     Dosage: 80 MG, 1X/DAY
     Route: 048
     Dates: start: 2005, end: 2011
  2. GEODON [Suspect]
     Indication: INSOMNIA
     Dosage: 60 MG, 1X/DAY
     Route: 048
     Dates: start: 2011
  3. GEODON [Suspect]
     Dosage: 80 MG, ONCE AT NIGHT
     Route: 048
     Dates: start: 2003
  4. GEODON [Suspect]
     Dosage: 60 MG, ONCE AT NIGHT
     Route: 048
  5. GEODON [Suspect]
     Dosage: 40 MG, ONCE AT NIGHT
     Route: 048
  6. GEODON [Suspect]
     Dosage: 20 MG, ONCE AT NIGHT
     Route: 048
  7. MELATONIN [Concomitant]
     Dosage: UNK
  8. TOPAMAX [Concomitant]
     Indication: BIPOLAR DISORDER

REACTIONS (3)
  - Sleep disorder [Unknown]
  - Head injury [Recovered/Resolved]
  - Amnesia [Recovering/Resolving]
